FAERS Safety Report 8786864 (Version 2)
Quarter: 2012Q4

REPORT INFORMATION
  Report Type: 
  Country: IT (occurrence: IT)
  Receive Date: 20120914
  Receipt Date: 20120924
  Transmission Date: 20130627
  Serious: Yes (Life-Threatening, Hospitalization)
  Sender: FDA-Public Use
  Company Number: IT-BRISTOL-MYERS SQUIBB COMPANY-16932303

PATIENT
  Age: 51 Year
  Sex: Female

DRUGS (10)
  1. ORENCIA FOR INJ 250 MG/VIAL [Suspect]
     Indication: RHEUMATOID ARTHRITIS
     Route: 042
     Dates: start: 20091120, end: 20120830
  2. OMEPRAZOLE [Concomitant]
     Dosage: rigid capsules
     Route: 048
  3. TRIATEC [Concomitant]
     Dosage: Tab
     Route: 048
  4. SEQUACOR [Concomitant]
     Dosage: Tab
     Route: 048
  5. METHOTREXATE [Concomitant]
     Dosage: Soln for inf
     Route: 030
  6. FOLINA [Concomitant]
     Dosage: soft capsules
     Route: 048
  7. DELTACORTENE [Concomitant]
     Dosage: Tab
     Route: 048
  8. CARDIOASPIRIN [Concomitant]
     Dosage: Tab
     Route: 048
  9. TOTALIP [Concomitant]
     Dosage: Tab
     Route: 048
  10. NAPROSYN [Concomitant]
     Dosage: 1 tablet/day

REACTIONS (2)
  - Pericarditis [Unknown]
  - Cardiac tamponade [Unknown]
